FAERS Safety Report 5448648-X (Version None)
Quarter: 2007Q3

REPORT INFORMATION
  Report Type: 
  Country: None (occurrence: None)
  Receive Date: 20070911
  Receipt Date: 20070904
  Transmission Date: 20080115
  Serious: Yes (Hospitalization)
  Sender: FDA-Public Use
  Company Number: US-SANOFI-SYNTHELABO-A03200705426

PATIENT
  Sex: Male
  Weight: 81.6 kg

DRUGS (2)
  1. VITAMIN TAB [Concomitant]
     Dosage: UNK
     Route: 048
  2. ELIGARD [Suspect]
     Indication: PROSTATIC SPECIFIC ANTIGEN INCREASED
     Dosage: 6-MONTH INJECTION
     Route: 058
     Dates: start: 20070402, end: 20070402

REACTIONS (1)
  - IDIOPATHIC THROMBOCYTOPENIC PURPURA [None]
